FAERS Safety Report 10297072 (Version 1)
Quarter: 2014Q3

REPORT INFORMATION
  Report Type: Other
  Country: DE (occurrence: DE)
  Receive Date: 20140711
  Receipt Date: 20140711
  Transmission Date: 20150326
  Serious: Yes (Other)
  Sender: FDA-Public Use
  Company Number: DE-LUPIN PHARMACEUTICALS INC.-2013-01575

PATIENT
  Sex: Male
  Weight: 3.51 kg

DRUGS (1)
  1. LAMOTRIGIN [Suspect]
     Active Substance: LAMOTRIGINE
     Indication: EPILEPSY
     Route: 063
     Dates: start: 20070918, end: 20080106

REACTIONS (1)
  - Hepatic enzyme increased [Recovered/Resolved]
